FAERS Safety Report 19507190 (Version 3)
Quarter: 2021Q3

REPORT INFORMATION
  Report Type: Spontaneous
  Country: US (occurrence: US)
  Receive Date: 20210708
  Receipt Date: 20210903
  Transmission Date: 20211014
  Serious: Yes (Hospitalization, Other)
  Sender: FDA-Public Use
  Company Number: US-PFIZER INC-2021785263

PATIENT
  Age: 61 Year
  Sex: Male

DRUGS (2)
  1. INLYTA [Suspect]
     Active Substance: AXITINIB
     Dosage: 5 MG
     Dates: start: 20210617, end: 20210624
  2. INLYTA [Suspect]
     Active Substance: AXITINIB
     Dosage: 5 MG
     Dates: start: 20210501

REACTIONS (4)
  - Cardiac disorder [Unknown]
  - Thyroid hormones increased [Unknown]
  - Myocardial infarction [Unknown]
  - Dyspnoea [Unknown]
